FAERS Safety Report 24294271 (Version 1)
Quarter: 2024Q3

REPORT INFORMATION
  Report Type: Spontaneous
  Country: US (occurrence: US)
  Receive Date: 20240906
  Receipt Date: 20240906
  Transmission Date: 20241017
  Serious: No
  Sender: DOMPE FARMACEUTICI
  Company Number: US-FARMAPROD-202406-2217

PATIENT
  Sex: Male
  Weight: 81.65 kg

DRUGS (24)
  1. OXERVATE [Suspect]
     Active Substance: CENEGERMIN-BKBJ
     Indication: Neurotrophic keratopathy
     Route: 047
     Dates: start: 20240515
  2. OFLOXACIN [Concomitant]
     Active Substance: OFLOXACIN
  3. METOPROLOL SUCCINATE [Concomitant]
     Active Substance: METOPROLOL SUCCINATE
     Dosage: 24H
  4. ELIQUIS [Concomitant]
     Active Substance: APIXABAN
  5. NITROGLYCERIN [Concomitant]
     Active Substance: NITROGLYCERIN
  6. DIAZEPAM [Concomitant]
     Active Substance: DIAZEPAM
  7. ROSUVASTATIN CALCIUM [Concomitant]
     Active Substance: ROSUVASTATIN CALCIUM
  8. ASPIRIN [Concomitant]
     Active Substance: ASPIRIN
  9. PRED MILD [Concomitant]
     Active Substance: PREDNISOLONE ACETATE
  10. KETOROLAC TROMETHAMINE [Concomitant]
     Active Substance: KETOROLAC TROMETHAMINE
  11. VALTREX [Concomitant]
     Active Substance: VALACYCLOVIR HYDROCHLORIDE
  12. JARDIANCE [Concomitant]
     Active Substance: EMPAGLIFLOZIN
  13. POTASSIUM CHLORIDE [Concomitant]
     Active Substance: POTASSIUM CHLORIDE
  14. PYRIDOXINE HYDROCHLORIDE [Concomitant]
     Active Substance: PYRIDOXINE HYDROCHLORIDE
  15. FAMCICLOVIR [Concomitant]
     Active Substance: FAMCICLOVIR
  16. OXYCODONE HYDROCHLORIDE [Concomitant]
     Active Substance: OXYCODONE HYDROCHLORIDE
  17. LOSARTAN POTASSIUM [Concomitant]
     Active Substance: LOSARTAN POTASSIUM
  18. FINASTERIDE [Concomitant]
     Active Substance: FINASTERIDE
  19. TAMSULOSIN HYDROCHLORIDE [Concomitant]
     Active Substance: TAMSULOSIN HYDROCHLORIDE
  20. PANTOPRAZOLE SODIUM [Concomitant]
     Active Substance: PANTOPRAZOLE SODIUM
  21. FUROSEMIDE [Concomitant]
     Active Substance: FUROSEMIDE
  22. BACTIN [TRIMETHOPRIM] [Concomitant]
  23. POLYMYXIN B SUL-TRIMETHOPRIM [Concomitant]
  24. PRED MILD [Concomitant]
     Active Substance: PREDNISOLONE ACETATE

REACTIONS (2)
  - Corneal scar [Unknown]
  - Drug ineffective [Unknown]
